FAERS Safety Report 9031264 (Version 2)
Quarter: 2013Q1

REPORT INFORMATION
  Report Type: Spontaneous
  Country: US (occurrence: US)
  Receive Date: 20130123
  Receipt Date: 20130208
  Transmission Date: 20140127
  Serious: Yes (Death, Hospitalization, Other)
  Sender: FDA-Public Use
  Company Number: US-BAXTER-2013BAX002095

PATIENT
  Age: 63 Year
  Sex: Male

DRUGS (2)
  1. DIANEAL LOW CALCIUM [Suspect]
     Indication: PERITONEAL DIALYSIS
     Dosage: 10L
     Route: 033
     Dates: end: 20121224
  2. EXTRANEAL [Suspect]
     Indication: PERITONEAL DIALYSIS
     Dosage: 2L
     Route: 033
     Dates: end: 20121224

REACTIONS (5)
  - Sepsis [Fatal]
  - Multi-organ failure [Fatal]
  - No therapeutic response [Unknown]
  - Pneumonia [Unknown]
  - Peritonitis bacterial [Unknown]
